FAERS Safety Report 8889138 (Version 2)
Quarter: 2012Q4

REPORT INFORMATION
  Report Type: Report from Study
  Country: US (occurrence: US)
  Receive Date: 20121106
  Receipt Date: 20121109
  Transmission Date: 20130627
  Serious: Yes (Other)
  Sender: FDA-Public Use
  Company Number: US-ABBOTT-12P-163-1002205-00

PATIENT
  Age: 54 None
  Sex: Male

DRUGS (18)
  1. HUMIRA [Suspect]
     Indication: PSORIASIS
     Dates: start: 201009, end: 20120630
  2. HUMIRA [Suspect]
     Dates: start: 20120813
  3. ZOLOFT [Concomitant]
     Indication: DEPRESSION
  4. ZOLPIDEM TARTRATE [Concomitant]
     Indication: PRODUCT USED FOR UNKNOWN INDICATION
  5. GABAPENTIN [Concomitant]
     Indication: FIBROMYALGIA
  6. SYNTHROID [Concomitant]
     Indication: HYPOTHYROIDISM
  7. DIAZEPAM [Concomitant]
     Indication: ANXIETY
  8. ATORVASTATIN [Concomitant]
     Indication: BLOOD CHOLESTEROL ABNORMAL
  9. TRAMADOL [Concomitant]
     Indication: PAIN
  10. CITALOPRAM [Concomitant]
     Indication: DEPRESSION
  11. OXYCODONE [Concomitant]
     Indication: PAIN
  12. TRAZODONE [Concomitant]
     Indication: POST-TRAUMATIC STRESS DISORDER
  13. HYDROCHLOROTHIAZIDE [Concomitant]
     Indication: BLOOD PRESSURE
  14. HYDROCORTISONE [Concomitant]
     Indication: HYPOGONADISM
  15. TESTOSTERONE [Concomitant]
     Indication: HYPOGONADISM
  16. LYRICA [Concomitant]
     Indication: FIBROMYALGIA
  17. AMOXICILLIN [Concomitant]
     Indication: IMMUNE ENHANCEMENT THERAPY
  18. SINGULAR [Concomitant]
     Indication: SEASONAL ALLERGY

REACTIONS (3)
  - Osteoarthritis [Not Recovered/Not Resolved]
  - Osteoarthritis [Not Recovered/Not Resolved]
  - Pain [Not Recovered/Not Resolved]
